FAERS Safety Report 8471617 (Version 2)
Quarter: 2013Q1

REPORT INFORMATION
  Report Type: Spontaneous
  Country: US (occurrence: US)
  Receive Date: 20120322
  Receipt Date: 20130124
  Transmission Date: 20140127
  Serious: Yes (Hospitalization, Other)
  Sender: FDA-Public Use
  Company Number: US-PFIZER INC-2012071702

PATIENT
  Age: 78 Year
  Sex: Female
  Weight: 70.3 kg

DRUGS (6)
  1. ADVIL [Suspect]
     Indication: ARTHRITIS
     Dosage: UNK, AS NEEDED
     Route: 048
     Dates: end: 201111
  2. CELEBREX [Suspect]
     Indication: ARTHRITIS
     Dosage: 200 MG, UNK
     Route: 048
     Dates: start: 201202
  3. CELEBREX [Suspect]
     Dosage: 200 MG, 1X/DAY
     Route: 048
  4. CELEBREX [Suspect]
     Dosage: UNK, EVERY OTHER DAY
     Route: 048
     Dates: start: 201301
  5. CARDIZEM [Concomitant]
     Indication: HYPERTENSION
     Dosage: UNK, 1X/DAY
  6. ATENOLOL [Concomitant]
     Indication: HYPERTENSION
     Dosage: 25 MG, 1X/DAY

REACTIONS (7)
  - Renal injury [Unknown]
  - Gastric ulcer [Unknown]
  - Hypersensitivity [Unknown]
  - Pain [Unknown]
  - Activities of daily living impaired [Unknown]
  - Musculoskeletal disorder [Unknown]
  - Hypokinesia [Unknown]
